FAERS Safety Report 7374470-3 (Version None)
Quarter: 2011Q1

REPORT INFORMATION
  Report Type: 
  Country: None (occurrence: None)
  Receive Date: 20110325
  Receipt Date: 20101230
  Transmission Date: 20110831
  Serious: No
  Sender: FDA-Public Use
  Company Number: US-MYLANLABS-2011S1000151

PATIENT
  Age: 37 Year
  Sex: Female

DRUGS (4)
  1. NADOLOL [Concomitant]
     Route: 048
  2. EFFEXOR [Concomitant]
     Route: 048
  3. FENTANYL-100 [Suspect]
     Indication: MUSCULOSKELETAL PAIN
     Dosage: Q3D
     Route: 062
     Dates: start: 20100201
  4. LOESTRIN 1.5/30 [Concomitant]
     Route: 048

REACTIONS (1)
  - WITHDRAWAL SYNDROME [None]
